FAERS Safety Report 5086399-4 (Version None)
Quarter: 2006Q3

REPORT INFORMATION
  Report Type: 
  Country: None (occurrence: None)
  Receive Date: 20060703
  Receipt Date: 20060321
  Transmission Date: 20061208
  Serious: No
  Sender: FDA-Public Use
  Company Number: 2006S1002471

PATIENT
  Age: 37 Year
  Sex: Female

DRUGS (2)
  1. CLOZAPINE [Suspect]
     Dosage: 500 MG;HS;ORAL
     Route: 048
  2. FLUOXETINE [Concomitant]

REACTIONS (1)
  - GRANULOCYTOPENIA [None]
